FAERS Safety Report 20783105 (Version 7)
Quarter: 2025Q1

REPORT INFORMATION
  Report Type: Report from Study
  Country: DE (occurrence: DE)
  Receive Date: 20220504
  Receipt Date: 20250122
  Transmission Date: 20250409
  Serious: No
  Sender: ROCHE
  Company Number: DE-ROCHE-3002670

PATIENT
  Age: 39 Year
  Sex: Female
  Weight: 52 kg

DRUGS (4)
  1. OCREVUS [Suspect]
     Active Substance: OCRELIZUMAB
     Indication: Relapsing-remitting multiple sclerosis
     Route: 042
     Dates: start: 20211019
  2. OCREVUS [Suspect]
     Active Substance: OCRELIZUMAB
     Route: 042
     Dates: start: 20211019
  3. ESCITALOPRAM [Concomitant]
     Active Substance: ESCITALOPRAM OXALATE
  4. IBUPROFEN [Concomitant]
     Active Substance: IBUPROFEN

REACTIONS (20)
  - Sinusitis [Recovered/Resolved]
  - Pharyngeal erythema [Unknown]
  - Oropharyngeal pain [Unknown]
  - Headache [Unknown]
  - Odynophagia [Unknown]
  - Eczema [Recovered/Resolved]
  - Weight increased [Recovering/Resolving]
  - Sensory disturbance [Recovered/Resolved]
  - Seasonal allergy [Recovered/Resolved]
  - Allergy to animal [Recovered/Resolved]
  - Impaired healing [Recovered/Resolved]
  - Oral herpes [Recovered/Resolved]
  - White blood cell count decreased [Recovered/Resolved]
  - Allergy to plants [Recovered/Resolved]
  - COVID-19 [Recovered/Resolved]
  - Infection susceptibility increased [Unknown]
  - Influenza like illness [Not Recovered/Not Resolved]
  - Pain in extremity [Not Recovered/Not Resolved]
  - Nasopharyngitis [Not Recovered/Not Resolved]
  - Cough [Not Recovered/Not Resolved]

NARRATIVE: CASE EVENT DATE: 20211019
